FAERS Safety Report 5120577-0 (Version None)
Quarter: 2006Q4

REPORT INFORMATION
  Report Type: 
  Country: None (occurrence: None)
  Receive Date: 20061002
  Receipt Date: 20060921
  Transmission Date: 20070319
  Serious: Yes (Life-Threatening, Hospitalization, Other)
  Sender: FDA-Public Use
  Company Number: CA200609001095

PATIENT
  Age: 24 Year
  Sex: Female

DRUGS (5)
  1. ZYPREXA ZYDIS [Suspect]
     Indication: SCHIZOPHRENIA, PARANOID TYPE
     Dosage: SEE IMAGE, ORAL
     Route: 048
     Dates: start: 20060310, end: 20060312
  2. ZYPREXA ZYDIS [Suspect]
     Indication: SCHIZOPHRENIA, PARANOID TYPE
     Dosage: SEE IMAGE, ORAL
     Route: 048
     Dates: start: 20060313
  3. CANNABIS (CANNABIS) [Concomitant]
  4. VITAMINS [Concomitant]
  5. FERROUS SULFATE TAB [Concomitant]

REACTIONS (6)
  - ANTEPARTUM HAEMORRHAGE [None]
  - CAESAREAN SECTION [None]
  - DRUG EXPOSURE DURING PREGNANCY [None]
  - PREMATURE LABOUR [None]
  - PREMATURE RUPTURE OF MEMBRANES [None]
  - UTERINE HAEMORRHAGE [None]
